FAERS Safety Report 18597689 (Version 1)
Quarter: 2020Q4

REPORT INFORMATION
  Report Type: Other
  Country: IT (occurrence: IT)
  Receive Date: 20201209
  Receipt Date: 20201209
  Transmission Date: 20210114
  Serious: Yes (Other)
  Sender: FDA-Public Use
  Company Number: IT-VALIDUS PHARMACEUTICALS LLC-IT-2020VAL001025

PATIENT

DRUGS (3)
  1. LASIX [Suspect]
     Active Substance: FUROSEMIDE
     Indication: DRUG ABUSE
     Dosage: 10 DF, TOTAL
     Route: 065
     Dates: start: 20201024, end: 20201024
  2. DICLOFENAC SODIUM. [Suspect]
     Active Substance: DICLOFENAC SODIUM
     Indication: DRUG ABUSE
     Dosage: 10 DF, TOTAL
     Route: 065
     Dates: start: 20201024, end: 20201024
  3. THIOCOLCHICOSIDE [Suspect]
     Active Substance: THIOCOLCHICOSIDE
     Indication: DRUG ABUSE
     Dosage: 5 DF, TOTAL
     Route: 065
     Dates: start: 20201024, end: 20201024

REACTIONS (2)
  - Drug abuse [Unknown]
  - Speech disorder [Recovered/Resolved]

NARRATIVE: CASE EVENT DATE: 20201024
